FAERS Safety Report 24284736 (Version 1)
Quarter: 2024Q3

REPORT INFORMATION
  Report Type: Spontaneous
  Country: CA (occurrence: CA)
  Receive Date: 20240905
  Receipt Date: 20240905
  Transmission Date: 20241016
  Serious: Yes (Other)
  Sender: ACCORD
  Company Number: None

PATIENT
  Age: 75 Year
  Sex: Female

DRUGS (4)
  1. CARBOPLATIN [Suspect]
     Active Substance: CARBOPLATIN
     Indication: Ovarian cancer
     Route: 065
  2. PACLITAXEL [Suspect]
     Active Substance: PACLITAXEL
     Indication: Ovarian cancer
     Dosage: DOSE: 175.0 MG/M SQ.
     Route: 065
  3. DOXORUBICIN [Suspect]
     Active Substance: DOXORUBICIN
     Indication: Ovarian cancer
     Dosage: DOSE: 30.0 MG/M SQ.
     Route: 065
  4. CARBOPLATIN [Suspect]
     Active Substance: CARBOPLATIN
     Indication: Ovarian cancer
     Dosage: SOLUTION INTRAVENOUS
     Route: 042

REACTIONS (9)
  - Constipation [Unknown]
  - Diarrhoea [Unknown]
  - Dysgeusia [Unknown]
  - Dyspepsia [Unknown]
  - Fatigue [Unknown]
  - Hyperhidrosis [Unknown]
  - Nausea [Unknown]
  - Neuropathy peripheral [Unknown]
  - Vomiting [Unknown]
